FAERS Safety Report 24614141 (Version 2)
Quarter: 2024Q4

REPORT INFORMATION
  Report Type: Spontaneous
  Country: US (occurrence: US)
  Receive Date: 20241113
  Receipt Date: 20241119
  Transmission Date: 20250114
  Serious: Yes (Hospitalization, Other)
  Sender: AUROBINDO
  Company Number: US-AUROBINDO-AUR-APL-2024-054444

PATIENT
  Age: 44 Year
  Sex: Male
  Weight: 102 kg

DRUGS (32)
  1. TOPIRAMATE [Suspect]
     Active Substance: TOPIRAMATE
     Indication: Partial seizures
     Dosage: MAXIMUM DOSE 400MG
     Route: 065
  2. TOPIRAMATE [Suspect]
     Active Substance: TOPIRAMATE
     Dosage: 100 MG/D
     Route: 065
  3. PHENYTOIN [Suspect]
     Active Substance: PHENYTOIN
     Indication: Partial seizures
     Dosage: MAXIMUM DOSE 350MG
     Route: 065
  4. LEVETIRACETAM [Suspect]
     Active Substance: LEVETIRACETAM
     Indication: Partial seizures
     Dosage: MAXIMUM DOSE 2000MG
     Route: 065
  5. LAMOTRIGINE [Suspect]
     Active Substance: LAMOTRIGINE
     Indication: Partial seizures
     Dosage: MAXIMUM DOSE 800MG
     Route: 065
     Dates: start: 2013
  6. LAMOTRIGINE [Suspect]
     Active Substance: LAMOTRIGINE
     Dosage: 800 MG/ 9 MG/L;
     Route: 065
     Dates: start: 2013
  7. LAMOTRIGINE [Suspect]
     Active Substance: LAMOTRIGINE
     Dosage: 200 MG/D (RESTARTED IN 2013, SERUM LEVEL AT IMPLANTATION 5 MG/L
     Route: 065
     Dates: start: 2013
  8. LACOSAMIDE [Suspect]
     Active Substance: LACOSAMIDE
     Indication: Partial seizures
     Dosage: MAXIMUM DOSE 500MG
     Route: 065
     Dates: start: 2013
  9. LACOSAMIDE [Suspect]
     Active Substance: LACOSAMIDE
     Dosage: 500 MG/ 10 MG/L
     Route: 065
     Dates: start: 2013
  10. LACOSAMIDE [Suspect]
     Active Substance: LACOSAMIDE
     Dosage: 400 MG/D  SERUM LEVEL AT IMPLANTATION 7,5 MG/L
     Route: 065
     Dates: start: 2013
  11. LACOSAMIDE [Suspect]
     Active Substance: LACOSAMIDE
     Dosage: 300 MG/D
     Route: 065
     Dates: start: 2022
  12. ZONISAMIDE [Suspect]
     Active Substance: ZONISAMIDE
     Indication: Partial seizures
     Dosage: MAXIMUM DOSE 500MG
     Route: 065
  13. ZONISAMIDE [Suspect]
     Active Substance: ZONISAMIDE
     Dosage: 500/ 24 MG/L
     Route: 065
  14. PHENOBARBITAL [Suspect]
     Active Substance: PHENOBARBITAL
     Indication: Partial seizures
     Dosage: DOCUMENTED MAXIMUM SERUM LEVEL 19 MG/
     Route: 065
  15. VALPROATE [Suspect]
     Active Substance: VALPROIC ACID
     Indication: Partial seizures
     Dosage: MAXIMUM DOSE 3000MG
     Route: 065
  16. VALPROATE [Suspect]
     Active Substance: VALPROIC ACID
     Dosage: 3000 MG/106 MG/L
     Route: 065
  17. VALPROATE [Suspect]
     Active Substance: VALPROIC ACID
     Dosage: FREE VPA15MG/L
     Route: 065
  18. CARBAMAZEPINE [Suspect]
     Active Substance: CARBAMAZEPINE
     Indication: Partial seizures
     Dosage: MAXIMUM DOSE 400MG
     Route: 065
  19. CARBAMAZEPINE [Suspect]
     Active Substance: CARBAMAZEPINE
     Dosage: 400 MG/ 8 MG/L;
     Route: 065
  20. OXCARBAZEPINE [Suspect]
     Active Substance: OXCARBAZEPINE
     Indication: Partial seizures
     Dosage: MAXIMUM DOSE 2100MG
     Route: 065
  21. PERAMPANEL [Suspect]
     Active Substance: PERAMPANEL
     Indication: Partial seizures
     Dosage: MAXIMUM DOSE 14MG
     Route: 065
     Dates: start: 2013
  22. PERAMPANEL [Suspect]
     Active Substance: PERAMPANEL
     Dosage: 14 MG / 632 MG/
     Route: 065
     Dates: start: 2013
  23. PERAMPANEL [Suspect]
     Active Substance: PERAMPANEL
     Dosage: 14 MG/D SERUM LEVEL AT VNS IMPLANTATION 490 MG/L
     Route: 065
     Dates: start: 2013
  24. PERAMPANEL [Suspect]
     Active Substance: PERAMPANEL
     Dosage: FROM 14 TO 12 MG/D
     Route: 065
     Dates: start: 201509, end: 201603
  25. AMITRIPTYLINE [Concomitant]
     Active Substance: AMITRIPTYLINE
     Indication: Antidepressant therapy
     Dosage: 50 MG
     Route: 065
  26. FLUPENTIXOL [Concomitant]
     Active Substance: FLUPENTIXOL
     Indication: Antidepressant therapy
     Dosage: DEPOT ALL 2 WEEKS IN UNKNOWN MAXIMAL DOSAGE
     Route: 065
  27. TRIMIPRAMINE [Concomitant]
     Active Substance: TRIMIPRAMINE
     Indication: Antidepressant therapy
     Dosage: 200 MG
     Route: 065
  28. LORAZEPAM [Concomitant]
     Active Substance: LORAZEPAM
     Indication: Antidepressant therapy
     Dosage: 2 MG
     Route: 065
  29. CITALOPRAM [Concomitant]
     Active Substance: CITALOPRAM
     Indication: Antidepressant therapy
     Dosage: 20 MG
     Route: 065
     Dates: start: 2013
  30. OLANZAPINE [Concomitant]
     Active Substance: OLANZAPINE
     Indication: Antidepressant therapy
     Dosage: 17,5 MG
     Route: 065
     Dates: start: 2011
  31. OLANZAPINE [Concomitant]
     Active Substance: OLANZAPINE
     Dosage: 10 MG
     Route: 065
     Dates: start: 2021
  32. BRIVARACETAM [Concomitant]
     Active Substance: BRIVARACETAM
     Indication: Antidepressant therapy
     Dosage: 200 MG
     Route: 065
     Dates: start: 201603

REACTIONS (1)
  - Treatment failure [Unknown]
